FAERS Safety Report 6321659-8 (Version None)
Quarter: 2009Q3

REPORT INFORMATION
  Report Type: 
  Country: None (occurrence: None)
  Receive Date: 20090824
  Receipt Date: 20090820
  Transmission Date: 20100115
  Serious: Yes (Hospitalization)
  Sender: FDA-Public Use
  Company Number: US-BAYER-200929142GPV

PATIENT
  Age: 78 Year
  Sex: Male

DRUGS (2)
  1. SORAFENIB [Suspect]
     Indication: METASTATIC NEOPLASM
     Route: 048
     Dates: start: 20080218
  2. AMG 386 OR PLACEBO [Suspect]
     Indication: METASTATIC NEOPLASM
     Route: 042
     Dates: start: 20080218

REACTIONS (1)
  - ANAL ABSCESS [None]
